FAERS Safety Report 11621202 (Version 3)
Quarter: 2015Q4

REPORT INFORMATION
  Report Type: Spontaneous
  Country: US (occurrence: US)
  Receive Date: 20151012
  Receipt Date: 20151027
  Transmission Date: 20160304
  Serious: No
  Sender: FDA-Public Use
  Company Number: US-GLAXOSMITHKLINE-US2015GSK139498

PATIENT
  Sex: Female

DRUGS (2)
  1. SUMATRIPTAN SOLUTION FOR INJECTION IN PRE-FILLED PEN [Suspect]
     Active Substance: SUMATRIPTAN
  2. SUMATRIPTAN SOLUTION FOR INJECTION [Suspect]
     Active Substance: SUMATRIPTAN

REACTIONS (3)
  - Product quality issue [Unknown]
  - Injection site pain [Unknown]
  - Injection site reaction [Unknown]
